FAERS Safety Report 12968714 (Version 1)
Quarter: 2016Q4

REPORT INFORMATION
  Report Type: Spontaneous
  Country: US (occurrence: US)
  Receive Date: 20161123
  Receipt Date: 20161123
  Transmission Date: 20170207
  Serious: Yes (Other)
  Sender: FDA-Public Use
  Company Number: None

PATIENT
  Sex: Female

DRUGS (1)
  1. GABAPENTIN 300 MG ALKEM LABS LIMITED [Suspect]
     Active Substance: GABAPENTIN
     Dosage: 3 X A DAY MOUTH
     Route: 048

REACTIONS (2)
  - Ovarian cancer [None]
  - Reaction to drug excipients [None]

NARRATIVE: CASE EVENT DATE: 20161007
